FAERS Safety Report 11031091 (Version 1)
Quarter: 2015Q2

REPORT INFORMATION
  Report Type: Spontaneous
  Country: US (occurrence: US)
  Receive Date: 20150415
  Receipt Date: 20150415
  Transmission Date: 20150821
  Serious: No
  Sender: FDA-Public Use
  Company Number: US-ASTRAZENECA-2014SE85962

PATIENT
  Age: 85 Year
  Sex: Female

DRUGS (3)
  1. CHOLESTEROL- AND TRIGLYCERIDE REDUCERS [Concomitant]
     Active Substance: UNSPECIFIED INGREDIENT
     Dosage: UNKNOWN
  2. PRILOSEC OTC [Suspect]
     Active Substance: OMEPRAZOLE MAGNESIUM
     Indication: DYSPEPSIA
     Route: 048
     Dates: start: 20141024, end: 20141030
  3. PRILOSEC OTC [Suspect]
     Active Substance: OMEPRAZOLE MAGNESIUM
     Indication: DYSPEPSIA
     Dosage: 1 TABLET EVERY DAY FOR 6 DAYS
     Route: 048

REACTIONS (2)
  - Condition aggravated [Recovered/Resolved]
  - Dyspepsia [Recovered/Resolved]
